FAERS Safety Report 7215658-1 (Version None)
Quarter: 2011Q1

REPORT INFORMATION
  Report Type: 
  Country: None (occurrence: None)
  Receive Date: 20110104
  Receipt Date: 20110104
  Transmission Date: 20110831
  Serious: Yes (Other)
  Sender: FDA-Public Use
  Company Number: None

PATIENT
  Age: 5 Year
  Sex: Female
  Weight: 22.2263 kg

DRUGS (1)
  1. TAMIFLU [Suspect]
     Indication: INFLUENZA
     Dosage: 45MG TWICE A DAY PO
     Route: 048
     Dates: start: 20101229, end: 20101231

REACTIONS (9)
  - DIARRHOEA [None]
  - RASH [None]
  - SKIN IRRITATION [None]
  - NAUSEA [None]
  - URTICARIA [None]
  - PAIN OF SKIN [None]
  - ERYTHEMA [None]
  - VOMITING [None]
  - PRURITUS [None]
